FAERS Safety Report 12830209 (Version 2)
Quarter: 2018Q2

REPORT INFORMATION
  Report Type: Report from Study
  Country: US (occurrence: US)
  Receive Date: 20161007
  Receipt Date: 20180504
  Transmission Date: 20180711
  Serious: Yes (Hospitalization)
  Sender: FDA-Public Use
  Company Number: US-SA-2016SA157861

PATIENT
  Age: 36 Year
  Sex: Female

DRUGS (3)
  1. AUBAGIO [Suspect]
     Active Substance: TERIFLUNOMIDE
     Indication: MULTIPLE SCLEROSIS
     Route: 048
     Dates: start: 201606, end: 201802
  2. LORAZEPAM. [Concomitant]
     Active Substance: LORAZEPAM
  3. PEPCID [Concomitant]
     Active Substance: FAMOTIDINE

REACTIONS (5)
  - Fall [Recovered/Resolved]
  - Multiple sclerosis [Not Recovered/Not Resolved]
  - Abdominal distension [Not Recovered/Not Resolved]
  - Hypokinesia [Not Recovered/Not Resolved]
  - Head injury [Recovered/Resolved]

NARRATIVE: CASE EVENT DATE: 201606
